FAERS Safety Report 25623078 (Version 1)
Quarter: 2025Q3

REPORT INFORMATION
  Report Type: Report from Study
  Country: IN (occurrence: IN)
  Receive Date: 20250730
  Receipt Date: 20250730
  Transmission Date: 20251021
  Serious: Yes (Other)
  Sender: DAIICHI
  Company Number: IN-AstraZeneca-CH-00914575A

PATIENT
  Age: 52 Year
  Sex: Female
  Weight: 52 kg

DRUGS (1)
  1. ENHERTU [Suspect]
     Active Substance: FAM-TRASTUZUMAB DERUXTECAN-NXKI
     Indication: Product used for unknown indication
     Dosage: 200 ML, ONCE EVERY 3 WK
     Route: 040
     Dates: start: 20250712

REACTIONS (14)
  - Spinal cord disorder [Unknown]
  - Internal haemorrhage [Unknown]
  - Nausea [Unknown]
  - Vomiting [Unknown]
  - Diarrhoea [Unknown]
  - Asthenia [Unknown]
  - Gait inability [Unknown]
  - Hypersomnia [Unknown]
  - Affective disorder [Unknown]
  - Back pain [Unknown]
  - Decreased appetite [Unknown]
  - Feeding disorder [Unknown]
  - Weight decreased [Unknown]
  - Haemoglobin decreased [Unknown]
